FAERS Safety Report 7464619-6 (Version None)
Quarter: 2011Q2

REPORT INFORMATION
  Report Type: 
  Country: None (occurrence: None)
  Receive Date: 20110509
  Receipt Date: 20100913
  Transmission Date: 20111010
  Serious: No
  Sender: FDA-Public Use
  Company Number: US-BAYER-201036284NA

PATIENT
  Sex: Female

DRUGS (1)
  1. YAZ [Suspect]

REACTIONS (5)
  - ABDOMINAL DISTENSION [None]
  - POOR QUALITY SLEEP [None]
  - IRRITABLE BOWEL SYNDROME [None]
  - EATING DISORDER [None]
  - ABDOMINAL PAIN UPPER [None]
